FAERS Safety Report 7994361-4 (Version None)
Quarter: 2011Q4

REPORT INFORMATION
  Report Type: 
  Country: None (occurrence: None)
  Receive Date: 20111220
  Receipt Date: 20111024
  Transmission Date: 20120403
  Serious: No
  Sender: FDA-Public Use
  Company Number: US-GLAXOSMITHKLINE-A0950332A

PATIENT
  Age: 68 Year
  Sex: Female

DRUGS (7)
  1. ATENOLOL [Concomitant]
  2. SORIATANE [Suspect]
     Indication: PSORIASIS
     Dosage: 25MG PER DAY
     Route: 048
     Dates: start: 19980101
  3. LEVOTHYROXINE SODIUM [Concomitant]
  4. FAMOTIDINE [Concomitant]
  5. ASPIRIN [Concomitant]
  6. SIMVASTATIN [Concomitant]
  7. METFORMIN HCL [Concomitant]

REACTIONS (3)
  - BLOOD TRIGLYCERIDES INCREASED [None]
  - EYE DISORDER [None]
  - DRUG INEFFECTIVE [None]
